FAERS Safety Report 8202433-4 (Version None)
Quarter: 2012Q1

REPORT INFORMATION
  Report Type: 
  Country: None (occurrence: None)
  Receive Date: 20120312
  Receipt Date: 20120111
  Transmission Date: 20120608
  Serious: No
  Sender: FDA-Public Use
  Company Number: US-ABBOTT-12P-163-0890004-00

PATIENT
  Sex: Male
  Weight: 61.744 kg

DRUGS (3)
  1. COGENTIN [Concomitant]
     Dosage: BID
  2. DEPAKOTE [Suspect]
     Indication: SCHIZOAFFECTIVE DISORDER
     Dosage: AT HS
     Dates: start: 20100101
  3. HALDOL [Concomitant]
     Indication: PRODUCT USED FOR UNKNOWN INDICATION
     Dosage: BID

REACTIONS (2)
  - AMMONIA INCREASED [None]
  - OFF LABEL USE [None]
